FAERS Safety Report 6743734-6 (Version None)
Quarter: 2010Q2

REPORT INFORMATION
  Report Type: 
  Country: None (occurrence: None)
  Receive Date: 20100526
  Receipt Date: 20100526
  Transmission Date: 20101027
  Serious: Yes (Death)
  Sender: FDA-Public Use
  Company Number: None

PATIENT
  Age: 90 Year
  Sex: Male
  Weight: 54.4316 kg

DRUGS (2)
  1. GOLYTELY [Suspect]
     Indication: GASTROINTESTINAL DISORDER
     Dosage: 2-8OZ. GLASSES TWICE DAILY
  2. COUMADIN [Concomitant]

REACTIONS (1)
  - STARVATION [None]
